FAERS Safety Report 13093629 (Version 1)
Quarter: 2017Q1

REPORT INFORMATION
  Report Type: Report from Study
  Country: PK (occurrence: PK)
  Receive Date: 20170106
  Receipt Date: 20170106
  Transmission Date: 20170428
  Serious: Yes (Other)
  Sender: FDA-Public Use
  Company Number: PK-ASTRAZENECA-2016SF38568

PATIENT

DRUGS (1)
  1. BYETTA [Suspect]
     Active Substance: EXENATIDE
     Indication: TYPE 2 DIABETES MELLITUS
     Dosage: AVERAGE DOSE IN THE STUDY: 15 MG / DAY
     Route: 065

REACTIONS (1)
  - Acute kidney injury [Recovered/Resolved]
